FAERS Safety Report 4330871-9 (Version None)
Quarter: 2004Q1

REPORT INFORMATION
  Report Type: 
  Country: None (occurrence: None)
  Receive Date: 20040331
  Receipt Date: 20040315
  Transmission Date: 20041129
  Serious: Yes (Other)
  Sender: FDA-Public Use
  Company Number: USA040362004

PATIENT
  Age: 74 Year
  Sex: Female

DRUGS (3)
  1. FORTEO [Suspect]
     Indication: OSTEOPOROSIS
     Dosage: 20 UG/ 1 DAY
     Dates: start: 20040224, end: 20040314
  2. CALCIUM [Concomitant]
  3. MULTIVITAMIN [Concomitant]

REACTIONS (4)
  - ABASIA [None]
  - ASTHENIA [None]
  - DYSSTASIA [None]
  - HEADACHE [None]
